FAERS Safety Report 12234218 (Version 2)
Quarter: 2016Q2

REPORT INFORMATION
  Report Type: Spontaneous
  Country: US (occurrence: US)
  Receive Date: 20160404
  Receipt Date: 20160502
  Transmission Date: 20160815
  Serious: No
  Sender: FDA-Public Use
  Company Number: US-PFIZER INC-2016171065

PATIENT
  Age: 68 Year
  Sex: Male

DRUGS (2)
  1. SUTENT [Suspect]
     Active Substance: SUNITINIB MALATE
     Dosage: 1 DF, 2X/DAY, ONE IN THE MORNING AND ONE IN THE AFTERNOON
  2. SUTENT [Suspect]
     Active Substance: SUNITINIB MALATE
     Dosage: 50 MG, CYCLIC (4 WEEKS ON 2 WEEKS OFF)

REACTIONS (5)
  - Malaise [Unknown]
  - Influenza like illness [Unknown]
  - Feeling abnormal [Not Recovered/Not Resolved]
  - Nasopharyngitis [Unknown]
  - Intentional product misuse [Unknown]
